FAERS Safety Report 11742028 (Version 1)
Quarter: 2015Q4

REPORT INFORMATION
  Report Type: Spontaneous
  Country: US (occurrence: None)
  Receive Date: 20151113
  Receipt Date: 20151113
  Transmission Date: 20160304
  Serious: Yes (Hospitalization)
  Sender: FDA-Public Use
  Company Number: None

PATIENT
  Age: 38 Year
  Sex: Female
  Weight: 90 kg

DRUGS (2)
  1. INSULIN PUMP [Concomitant]
     Active Substance: INSULIN NOS
  2. INVOKANA [Suspect]
     Active Substance: CANAGLIFLOZIN
     Route: 048

REACTIONS (10)
  - Influenza [None]
  - Hepatic steatosis [None]
  - Haematemesis [None]
  - Ketoacidosis [None]
  - Neck pain [None]
  - Hepatosplenomegaly [None]
  - Pyrexia [None]
  - Abdominal lymphadenopathy [None]
  - Blood glucose fluctuation [None]
  - Dyspnoea exertional [None]

NARRATIVE: CASE EVENT DATE: 20151026
